FAERS Safety Report 8267287-9 (Version None)
Quarter: 2012Q2

REPORT INFORMATION
  Report Type: 
  Country: None (occurrence: None)
  Receive Date: 20120405
  Receipt Date: 20120405
  Transmission Date: 20120825
  Serious: Yes (Hospitalization)
  Sender: FDA-Public Use
  Company Number: None

PATIENT
  Age: 60 Year
  Sex: Female
  Weight: 61.6892 kg

DRUGS (5)
  1. BUPROPION HCL [Concomitant]
  2. VARENICLINE [Suspect]
     Indication: SMOKING CESSATION THERAPY
     Dosage: 1MG BID
     Dates: start: 20110412, end: 20110628
  3. VARENICLINE OR PLACEBO [Suspect]
     Dosage: 1MG BID
     Dates: start: 20110628, end: 20120215
  4. GABAPENTIN [Concomitant]
  5. ADDERALL 5 [Concomitant]

REACTIONS (2)
  - PARENT-CHILD PROBLEM [None]
  - EMOTIONAL DISTRESS [None]
